FAERS Safety Report 8535250-6 (Version None)
Quarter: 2012Q3

REPORT INFORMATION
  Report Type: 
  Country: None (occurrence: None)
  Receive Date: 20120725
  Receipt Date: 20120719
  Transmission Date: 20120928
  Serious: Yes (Disabling)
  Sender: FDA-Public Use
  Company Number: US-AMGEN-USASP2012045026

PATIENT
  Sex: Male

DRUGS (1)
  1. ENBREL [Suspect]
     Indication: PSORIASIS
     Dosage: 50 MG, 2 TIMES/WK
     Dates: start: 20040101

REACTIONS (11)
  - BACK PAIN [None]
  - PSORIASIS [None]
  - INCORRECT STORAGE OF DRUG [None]
  - ARTHRITIS [None]
  - HIDRADENITIS [None]
  - MOBILITY DECREASED [None]
  - CORRECTIVE LENS USER [None]
  - MUSCLE SPASMS [None]
  - MUSCLE ATROPHY [None]
  - ACTIVITIES OF DAILY LIVING IMPAIRED [None]
  - TYPE 2 DIABETES MELLITUS [None]
